FAERS Safety Report 18963023 (Version 1)
Quarter: 2021Q1

REPORT INFORMATION
  Report Type: Spontaneous
  Country: US (occurrence: US)
  Receive Date: 20210303
  Receipt Date: 20210303
  Transmission Date: 20210420
  Serious: Yes (Hospitalization)
  Sender: FDA-Public Use
  Company Number: None

PATIENT
  Sex: Male

DRUGS (17)
  1. REPATHA [Suspect]
     Active Substance: EVOLOCUMAB
     Indication: TYPE V HYPERLIPIDAEMIA
     Dosage: OTHER FREQUENCY:Q2WKS;?
     Route: 058
     Dates: start: 20201211
  2. AMIODARONE [Concomitant]
     Active Substance: AMIODARONE
  3. CICLOPIROX. [Concomitant]
     Active Substance: CICLOPIROX
  4. VERAPAMIL [Concomitant]
     Active Substance: VERAPAMIL HYDROCHLORIDE
  5. HYDRALAZINE [Concomitant]
     Active Substance: HYDRALAZINE HYDROCHLORIDE
  6. ALBUTEROL. [Concomitant]
     Active Substance: ALBUTEROL
  7. FUROSEMIDE. [Concomitant]
     Active Substance: FUROSEMIDE
  8. VIT D [Concomitant]
     Active Substance: VITAMIN D NOS
  9. ELIQUIS [Concomitant]
     Active Substance: APIXABAN
  10. FLOVENT [Concomitant]
     Active Substance: FLUTICASONE PROPIONATE
  11. METOPROL TAR [Concomitant]
  12. CANDESARTAN. [Concomitant]
     Active Substance: CANDESARTAN
  13. ISOSORB DIN [Concomitant]
     Active Substance: ISOSORBIDE DINITRATE
  14. ROSUVASTATIN. [Concomitant]
     Active Substance: ROSUVASTATIN
  15. MONTELUKAST [Concomitant]
     Active Substance: MONTELUKAST SODIUM
  16. FENOFIBRATE. [Concomitant]
     Active Substance: FENOFIBRATE
  17. OMEGA 3 ACID [Concomitant]

REACTIONS (1)
  - Atrial fibrillation [None]
